FAERS Safety Report 9680520 (Version 4)
Quarter: 2013Q4

REPORT INFORMATION
  Report Type: Spontaneous
  Country: US (occurrence: US)
  Receive Date: 20131111
  Receipt Date: 20131217
  Transmission Date: 20140711
  Serious: Yes (Hospitalization, Other)
  Sender: FDA-Public Use
  Company Number: US-PFIZER INC-2013316819

PATIENT
  Age: 67 Year
  Sex: Female

DRUGS (3)
  1. XALKORI [Suspect]
     Indication: NON-SMALL CELL LUNG CANCER STAGE IIIA
     Dosage: 250 MG, 2X/DAY
     Dates: start: 20130826
  2. XALKORI [Suspect]
     Dosage: 250 MG, 2X/DAY
     Route: 048
     Dates: start: 20131011, end: 20131028
  3. XALKORI [Suspect]
     Dosage: 250 MG, 1X/DAY

REACTIONS (14)
  - Vomiting [Recovering/Resolving]
  - Nausea [Recovering/Resolving]
  - Urinary tract infection [Recovering/Resolving]
  - Renal disorder [Recovering/Resolving]
  - Renal failure acute [Unknown]
  - Blood glucose fluctuation [Unknown]
  - Memory impairment [Unknown]
  - Nervous system disorder [Unknown]
  - Anaemia [Unknown]
  - Lethargy [Unknown]
  - Gait disturbance [Unknown]
  - Oedema peripheral [Unknown]
  - Arthralgia [Unknown]
  - Hypotension [Unknown]
